FAERS Safety Report 21433006 (Version 2)
Quarter: 2022Q4

REPORT INFORMATION
  Report Type: Spontaneous
  Country: US (occurrence: US)
  Receive Date: 20221010
  Receipt Date: 20221017
  Transmission Date: 20230112
  Serious: No
  Sender: FDA-Public Use
  Company Number: US-AIMMUNE THERAPEUTICS, INC.-2022AIMT02596

PATIENT

DRUGS (4)
  1. PALFORZIA [Suspect]
     Active Substance: PEANUT
     Indication: Food allergy
     Dosage: IDE (0.5MG-6MG), ONCE
     Route: 048
  2. PALFORZIA [Suspect]
     Active Substance: PEANUT
     Dosage: 6 MG, 1X/DAY
     Route: 048
     Dates: start: 20220912, end: 202209
  3. PALFORZIA [Suspect]
     Active Substance: PEANUT
     Dosage: 6 MG, ONCE, LAST DOSE PRIOR TO EVENT
     Route: 048
     Dates: start: 202209, end: 202209
  4. PALFORZIA [Suspect]
     Active Substance: PEANUT
     Dosage: 3 MG, 1X/DAY, DECREASED DOSE
     Route: 048
     Dates: start: 20220926

REACTIONS (1)
  - Gastrooesophageal reflux disease [Unknown]

NARRATIVE: CASE EVENT DATE: 20220901
